FAERS Safety Report 8827933 (Version 2)
Quarter: 2012Q4

REPORT INFORMATION
  Report Type: 
  Country: US (occurrence: US)
  Receive Date: 20121005
  Receipt Date: 20121206
  Transmission Date: 20130627
  Serious: No
  Sender: FDA-Public Use
  Company Number: US-PFIZER INC-2012244272

PATIENT
  Age: 66 Year
  Sex: Male
  Weight: 92.97 kg

DRUGS (4)
  1. PROCARDIA XL [Suspect]
     Indication: UNCONTROLLED HYPERTENSION
     Dosage: UNK, 1x/day
     Route: 048
  2. PROCARDIA XL [Suspect]
     Dosage: 60 mg, 1x/day
     Route: 048
  3. DIOVAN [Suspect]
     Indication: UNCONTROLLED HYPERTENSION
     Dosage: UNK
  4. SYNTHROID [Concomitant]
     Dosage: UNK

REACTIONS (1)
  - Oedema peripheral [Unknown]
